FAERS Safety Report 7796868-1 (Version None)
Quarter: 2011Q4

REPORT INFORMATION
  Report Type: 
  Country: None (occurrence: None)
  Receive Date: 20111003
  Receipt Date: 20110926
  Transmission Date: 20120403
  Serious: Yes (Hospitalization, Other)
  Sender: FDA-Public Use
  Company Number: 201111165

PATIENT
  Sex: Male

DRUGS (1)
  1. LIORESAL [Suspect]
     Indication: MUSCLE SPASTICITY
     Dosage: 155 MCG, DAILY, INTRATHECAL
     Route: 037

REACTIONS (8)
  - DEVICE RELATED INFECTION [None]
  - CONDITION AGGRAVATED [None]
  - PURULENCE [None]
  - UNDERDOSE [None]
  - THERAPEUTIC RESPONSE DECREASED [None]
  - MUSCLE SPASTICITY [None]
  - INCISION SITE ERYTHEMA [None]
  - DEVICE CONNECTION ISSUE [None]
